FAERS Safety Report 7638335-1 (Version None)
Quarter: 2011Q3

REPORT INFORMATION
  Report Type: 
  Country: None (occurrence: None)
  Receive Date: 20110727
  Receipt Date: 20110713
  Transmission Date: 20111222
  Serious: Yes (Other)
  Sender: FDA-Public Use
  Company Number: US-UCBSA-037240

PATIENT
  Age: 82 Year
  Sex: Female

DRUGS (6)
  1. DIURETICS [Concomitant]
  2. VIMPAT [Suspect]
  3. DEPAKOTE [Concomitant]
  4. KEPPRA [Suspect]
  5. VIMPAT [Suspect]
     Dosage: UNKNOWN DOSE
  6. VIMPAT [Suspect]
     Dosage: TITRATING DOSE

REACTIONS (4)
  - ATRIOVENTRICULAR BLOCK COMPLETE [None]
  - HYPERSENSITIVITY [None]
  - BRADYCARDIA [None]
  - DRUG INEFFECTIVE [None]
